FAERS Safety Report 14534683 (Version 2)
Quarter: 2018Q2

REPORT INFORMATION
  Report Type: Spontaneous
  Country: US (occurrence: US)
  Receive Date: 20180215
  Receipt Date: 20180627
  Transmission Date: 20180711
  Serious: Yes (Other)
  Sender: FDA-Public Use
  Company Number: PHEH2018US005686

PATIENT
  Sex: Male
  Weight: 89.6 kg

DRUGS (1)
  1. NYSTATIN. [Suspect]
     Active Substance: NYSTATIN
     Indication: ORAL CANDIDIASIS
     Dosage: 4 ML, QID
     Route: 048

REACTIONS (4)
  - Aplastic anaemia [Unknown]
  - Oral candidiasis [Recovered/Resolved]
  - Mucosal inflammation [Unknown]
  - Drug ineffective [Unknown]
